FAERS Safety Report 7978424-5 (Version None)
Quarter: 2011Q4

REPORT INFORMATION
  Report Type: 
  Country: None (occurrence: None)
  Receive Date: 20111214
  Receipt Date: 20111206
  Transmission Date: 20120403
  Serious: Yes (Other)
  Sender: FDA-Public Use
  Company Number: JP-JNJFOC-20111202836

PATIENT
  Age: 67 Year
  Sex: Female

DRUGS (1)
  1. TRAMADOL HYDROCHLORIDE/ACETAMINOPHEN [Suspect]
     Indication: PAIN
     Dosage: ONE PER DAY
     Route: 048
     Dates: start: 20111022, end: 20111101

REACTIONS (1)
  - VISUAL ACUITY REDUCED [None]
